FAERS Safety Report 22221064 (Version 1)
Quarter: 2023Q2

REPORT INFORMATION
  Report Type: Spontaneous
  Country: CN (occurrence: CN)
  Receive Date: 20230418
  Receipt Date: 20230418
  Transmission Date: 20230721
  Serious: Yes (Hospitalization)
  Sender: FDA-Public Use
  Company Number: CN-STRIDES ARCOLAB LIMITED-2023SP005292

PATIENT
  Age: 34 Year
  Sex: Female

DRUGS (3)
  1. DEXAMETHASONE [Suspect]
     Active Substance: DEXAMETHASONE
     Indication: Tolosa-Hunt syndrome
     Dosage: 15 MILLIGRAM PER DAY
     Route: 042
  2. PREDNISOLONE [Suspect]
     Active Substance: PREDNISOLONE
     Indication: Tolosa-Hunt syndrome
     Dosage: 25 MILLIGRAM PER DAY
     Route: 048
  3. PREDNISOLONE [Suspect]
     Active Substance: PREDNISOLONE
     Indication: Cavernous sinus syndrome
     Dosage: UNK; WITH VANCOMYCIN FOR CSS
     Route: 065

REACTIONS (5)
  - Cavernous sinus syndrome [Recovered/Resolved]
  - Condition aggravated [Recovered/Resolved]
  - Staphylococcal infection [Recovered/Resolved]
  - Sinusitis [Recovered/Resolved]
  - Off label use [Unknown]
